FAERS Safety Report 10697975 (Version 1)
Quarter: 2014Q4

REPORT INFORMATION
  Report Type: Spontaneous
  Country: US (occurrence: None)
  Receive Date: 20141223
  Receipt Date: 20141223
  Transmission Date: 20150529
  Serious: No
  Sender: FDA-Public Use
  Company Number: 1000071654

PATIENT
  Age: 25 Year
  Sex: Female

DRUGS (15)
  1. CREATINE [Concomitant]
     Active Substance: CREATINE
  2. FENTANYL. [Concomitant]
     Active Substance: FENTANYL
  3. LAMICTAL [Concomitant]
     Active Substance: LAMOTRIGINE
  4. VALIUM [Concomitant]
     Active Substance: DIAZEPAM
  5. ARTANE (TRIHEXYPHENIDYL HYDROCHLORIDE) [Concomitant]
  6. BACLOFEN. [Concomitant]
     Active Substance: BACLOFEN
  7. TYLENOL [Concomitant]
     Active Substance: ACETAMINOPHEN
  8. CELEBREX [Concomitant]
     Active Substance: CELECOXIB
  9. PROVIGIL [Concomitant]
     Active Substance: MODAFINIL
  10. GABAPENTIN. [Concomitant]
     Active Substance: GABAPENTIN
  11. ATIVAN [Concomitant]
     Active Substance: LORAZEPAM
  12. LINZESS [Suspect]
     Active Substance: LINACLOTIDE
     Indication: GASTROINTESTINAL MOTILITY DISORDER
     Route: 048
     Dates: start: 20141011, end: 20141012
  13. CARNITINE [Concomitant]
     Active Substance: CARNITINE
  14. PREVACID [Concomitant]
     Active Substance: LANSOPRAZOLE
  15. AMETHYST (LEVONORGESTREL, ETHINYL ESTRADIOL)? [Concomitant]

REACTIONS (3)
  - Off label use [None]
  - Urticaria [None]
  - Rash [None]

NARRATIVE: CASE EVENT DATE: 20141011
